FAERS Safety Report 13291882 (Version 1)
Quarter: 2017Q1

REPORT INFORMATION
  Report Type: Spontaneous
  Country: JP (occurrence: JP)
  Receive Date: 20170303
  Receipt Date: 20170303
  Transmission Date: 20170428
  Serious: Yes (Hospitalization)
  Sender: FDA-Public Use
  Company Number: JP-GLAXOSMITHKLINE-JP2017JPN027971

PATIENT
  Age: 13 Year
  Sex: Female

DRUGS (3)
  1. CALONAL [Concomitant]
     Active Substance: ACETAMINOPHEN
     Dosage: UNK
  2. RELENZA [Suspect]
     Active Substance: ZANAMIVIR
     Indication: INFLUENZA
     Dosage: 10 MG, BID
     Route: 055
     Dates: start: 20170210
  3. MEDICON (DEXTROMETHORPHAN HYDROBROMIDE HYDRATE) [Concomitant]
     Dosage: UNK

REACTIONS (4)
  - Dyspnoea [Unknown]
  - Headache [Unknown]
  - Muscle spasms [Unknown]
  - Chest discomfort [Unknown]

NARRATIVE: CASE EVENT DATE: 201702
